FAERS Safety Report 7355759-0 (Version None)
Quarter: 2011Q1

REPORT INFORMATION
  Report Type: 
  Country: None (occurrence: None)
  Receive Date: 20110316
  Receipt Date: 20110307
  Transmission Date: 20110831
  Serious: Yes (Hospitalization, Other)
  Sender: FDA-Public Use
  Company Number: US-TEVA-270174USA

PATIENT
  Age: 32 Year
  Sex: Male

DRUGS (1)
  1. PHENTERMINE HCL [Suspect]
     Indication: DECREASED APPETITE

REACTIONS (1)
  - RHABDOMYOLYSIS [None]
